FAERS Safety Report 9056632 (Version 2)
Quarter: 2013Q1

REPORT INFORMATION
  Report Type: Spontaneous
  Country: IT (occurrence: IT)
  Receive Date: 20130204
  Receipt Date: 20130211
  Transmission Date: 20140127
  Serious: Yes (Hospitalization)
  Sender: FDA-Public Use
  Company Number: IT-PFIZER INC-2013042397

PATIENT
  Age: 87 Year
  Sex: Male

DRUGS (4)
  1. MEDROL [Suspect]
     Indication: ARTHRALGIA
     Dosage: 16 MG, 1X/DAY
     Route: 048
     Dates: start: 20120214, end: 20120219
  2. CARDIOASPIRIN [Suspect]
     Indication: CEREBROVASCULAR ACCIDENT
     Dosage: 100 MG, DAILY
     Route: 048
     Dates: start: 20110630, end: 20120219
  3. NORVASC [Concomitant]
  4. TRIATEC [Concomitant]
     Route: 048

REACTIONS (2)
  - Melaena [Unknown]
  - Abdominal pain upper [Unknown]
